FAERS Safety Report 22929008 (Version 6)
Quarter: 2023Q4

REPORT INFORMATION
  Report Type: Spontaneous
  Country: JP (occurrence: JP)
  Receive Date: 20230911
  Receipt Date: 20231208
  Transmission Date: 20240110
  Serious: Yes (Death, Hospitalization, Other)
  Sender: FDA-Public Use
  Company Number: JP-ONO-2023JP022560

PATIENT
  Age: 6 Decade
  Sex: Male

DRUGS (10)
  1. YERVOY [Suspect]
     Active Substance: IPILIMUMAB
     Indication: Metastatic renal cell carcinoma
     Dosage: FIRST TIME
     Route: 041
     Dates: start: 20210820, end: 20211119
  2. YERVOY [Suspect]
     Active Substance: IPILIMUMAB
     Dosage: SECOND TIME
     Route: 041
  3. YERVOY [Suspect]
     Active Substance: IPILIMUMAB
     Dosage: THIRD TIME
     Route: 041
     Dates: end: 20211119
  4. OPDIVO [Suspect]
     Active Substance: NIVOLUMAB
     Indication: Metastatic renal cell carcinoma
     Route: 041
     Dates: start: 20210820
  5. OPDIVO [Suspect]
     Active Substance: NIVOLUMAB
     Dosage: SECOND TIME
     Route: 041
  6. OPDIVO [Suspect]
     Active Substance: NIVOLUMAB
     Dosage: THIRD TIME
     Route: 041
  7. OPDIVO [Suspect]
     Active Substance: NIVOLUMAB
     Dosage: MONOTHERAPY
     Route: 041
  8. OPDIVO [Suspect]
     Active Substance: NIVOLUMAB
     Dosage: OPDIVO MONOTHERAPY WAS PERFORMED FOR THE 6TH TIME
     Route: 041
     Dates: start: 20220721
  9. OPDIVO [Suspect]
     Active Substance: NIVOLUMAB
     Dosage: PERFORMED ANOTHER 5 TIMES
     Route: 041
  10. CABOZANTINIB S-MALATE [Concomitant]
     Active Substance: CABOZANTINIB S-MALATE
     Indication: Metastatic renal cell carcinoma
     Dosage: UNK

REACTIONS (4)
  - Meningitis [Fatal]
  - Immune-mediated enterocolitis [Fatal]
  - Autoimmune arthritis [Recovering/Resolving]
  - Immune-mediated dermatitis [Unknown]

NARRATIVE: CASE EVENT DATE: 20220722
